FAERS Safety Report 6235717-X (Version None)
Quarter: 2009Q2

REPORT INFORMATION
  Report Type: 
  Country: None (occurrence: None)
  Receive Date: 20090618
  Receipt Date: 20090605
  Transmission Date: 20091009
  Serious: Yes (Death, Other)
  Sender: FDA-Public Use
  Company Number: GB-RANBAXY-2009RR-24647

PATIENT
  Age: 63 Year
  Sex: Male

DRUGS (6)
  1. GABAPENTIN [Suspect]
     Indication: NEURALGIA
     Route: 048
  2. MORPHINE SULFATE [Suspect]
     Indication: NEURALGIA
     Dosage: 10 MG, QD
     Route: 048
  3. MORPHINE [Suspect]
     Dosage: 60 MG, QD
     Route: 008
  4. MORPHINE [Suspect]
     Dosage: UNK
  5. BUPIVACAINE [Suspect]
     Indication: NEURALGIA
     Dosage: 13 ML, QD
     Route: 008
  6. CATAPRES [Suspect]
     Indication: NEURALGIA
     Dosage: 450 UG, QD
     Route: 008

REACTIONS (2)
  - DEATH [None]
  - DRUG INEFFECTIVE [None]
